FAERS Safety Report 9706380 (Version 1)
Quarter: 2013Q4

REPORT INFORMATION
  Report Type: Spontaneous
  Country: US (occurrence: US)
  Receive Date: 20131125
  Receipt Date: 20131125
  Transmission Date: 20140711
  Serious: No
  Sender: FDA-Public Use
  Company Number: US-BIOGENIDEC-2013BI059141

PATIENT
  Age: 71 Year
  Sex: Female

DRUGS (2)
  1. AVONEX [Suspect]
     Indication: MULTIPLE SCLEROSIS
     Route: 030
  2. AVONEX [Suspect]
     Indication: MULTIPLE SCLEROSIS
     Route: 030
     Dates: start: 20130624

REACTIONS (9)
  - Hypersomnia [Recovered/Resolved]
  - Somnolence [Unknown]
  - Infection [Recovered/Resolved]
  - Hallucination, visual [Recovered/Resolved]
  - Headache [Not Recovered/Not Resolved]
  - Chest pain [Not Recovered/Not Resolved]
  - Hallucination, auditory [Recovered/Resolved]
  - Nightmare [Recovered/Resolved]
  - Fear [Not Recovered/Not Resolved]
